FAERS Safety Report 17505106 (Version 1)
Quarter: 2020Q1

REPORT INFORMATION
  Report Type: Report from Study
  Country: CO (occurrence: CO)
  Receive Date: 20200305
  Receipt Date: 20200305
  Transmission Date: 20200409
  Serious: Yes (Hospitalization)
  Sender: FDA-Public Use
  Company Number: CO-ELI_LILLY_AND_COMPANY-CO202002011476

PATIENT
  Age: 79 Year
  Sex: Female

DRUGS (3)
  1. HIDROCLOROTIAZIDA [Concomitant]
     Active Substance: HYDROCHLOROTHIAZIDE
     Indication: PRODUCT USED FOR UNKNOWN INDICATION
     Dosage: 1 DOSAGE FORM, DAILY
  2. LOSARTAN. [Concomitant]
     Active Substance: LOSARTAN
     Indication: BLOOD PRESSURE MEASUREMENT
     Dosage: 50 (POSSIBLY MG) - ONE TABLET IN THE MORNING AND ONE IN THE AFTERNOON
  3. TERIPARATIDE [Suspect]
     Active Substance: TERIPARATIDE
     Indication: OSTEOPOROSIS
     Dosage: 20 UG, DAILY
     Route: 058
     Dates: start: 20200217, end: 20200220

REACTIONS (10)
  - Apathy [Unknown]
  - Hypoaesthesia [Unknown]
  - Tendon pain [Unknown]
  - Vomiting [Unknown]
  - Pain in extremity [Recovering/Resolving]
  - Gait inability [Unknown]
  - Malaise [Unknown]
  - Dizziness [Unknown]
  - Sleep disorder due to general medical condition, insomnia type [Unknown]
  - Blood pressure decreased [Recovered/Resolved]

NARRATIVE: CASE EVENT DATE: 20200217
